FAERS Safety Report 4333932-3 (Version None)
Quarter: 2004Q2

REPORT INFORMATION
  Report Type: 
  Country: None (occurrence: None)
  Receive Date: 20040402
  Receipt Date: 20040402
  Transmission Date: 20050107
  Serious: Yes (Hospitalization)
  Sender: FDA-Public Use
  Company Number: US012897

PATIENT
  Age: 37 Year
  Sex: Female
  Weight: 85.7298 kg

DRUGS (1)
  1. PROVIGIL [Suspect]
     Indication: HYPERSOMNIA

REACTIONS (1)
  - ARTERIOSPASM CORONARY [None]
